FAERS Safety Report 19984377 (Version 1)
Quarter: 2021Q4

REPORT INFORMATION
  Report Type: Spontaneous
  Country: US (occurrence: US)
  Receive Date: 20211022
  Receipt Date: 20211022
  Transmission Date: 20220303
  Serious: Yes (Hospitalization)
  Sender: FDA-Public Use
  Company Number: None

PATIENT
  Age: 80 Year
  Sex: Male
  Weight: 110 kg

DRUGS (1)
  1. FASENRA [Suspect]
     Active Substance: BENRALIZUMAB
     Indication: Asthma
     Dosage: ?          OTHER FREQUENCY:MONTHLY;
     Route: 058

REACTIONS (2)
  - Cellulitis [None]
  - Therapy non-responder [None]

NARRATIVE: CASE EVENT DATE: 20211008
